FAERS Safety Report 11723775 (Version 2)
Quarter: 2016Q1

REPORT INFORMATION
  Report Type: Spontaneous
  Country: US (occurrence: US)
  Receive Date: 20151111
  Receipt Date: 20160122
  Transmission Date: 20160525
  Serious: Yes (Hospitalization)
  Sender: FDA-Public Use
  Company Number: PHHY2015US134032

PATIENT
  Age: 70 Year
  Sex: Male
  Weight: 121.9 kg

DRUGS (1)
  1. VOTRIENT [Suspect]
     Active Substance: PAZOPANIB HYDROCHLORIDE
     Indication: RENAL CELL CARCINOMA
     Dosage: 200 MG, U
     Route: 065
     Dates: start: 20150317, end: 20150424

REACTIONS (12)
  - Back pain [Unknown]
  - Dehydration [Unknown]
  - Nausea [Recovered/Resolved]
  - Vomiting [Recovered/Resolved]
  - Eosinophilia [Recovered/Resolved]
  - Pelvic fluid collection [Unknown]
  - Cytopenia [Unknown]
  - Fistula discharge [Unknown]
  - Decreased appetite [Unknown]
  - Rash generalised [Recovered/Resolved]
  - Pyrexia [Recovering/Resolving]
  - Drug hypersensitivity [Unknown]

NARRATIVE: CASE EVENT DATE: 201504
